FAERS Safety Report 22287728 (Version 2)
Quarter: 2023Q2

REPORT INFORMATION
  Report Type: Spontaneous
  Country: US (occurrence: None)
  Receive Date: 20230505
  Receipt Date: 20230512
  Transmission Date: 20230721
  Serious: Yes (Hospitalization, Other)
  Sender: FDA-Public Use
  Company Number: US-ROCHE-3340974

PATIENT
  Sex: Female

DRUGS (1)
  1. OCREVUS [Suspect]
     Active Substance: OCRELIZUMAB
     Indication: Product used for unknown indication
     Dosage: LAST DOSE 26/JUL/2022
     Route: 065
     Dates: end: 202301

REACTIONS (9)
  - Eye infection [Unknown]
  - Arthritis infective [Unknown]
  - Vaginal infection [Unknown]
  - Eye infection bacterial [Unknown]
  - Eye pain [Unknown]
  - Arthralgia [Unknown]
  - Joint swelling [Unknown]
  - Bacterial vulvovaginitis [Unknown]
  - Arthritis bacterial [Unknown]
